FAERS Safety Report 14759744 (Version 2)
Quarter: 2018Q2

REPORT INFORMATION
  Report Type: Spontaneous
  Country: DE (occurrence: DE)
  Receive Date: 20180413
  Receipt Date: 20180609
  Transmission Date: 20180711
  Serious: Yes (Death, Other)
  Sender: FDA-Public Use
  Company Number: DE-AMGEN-DEUSP2018050338

PATIENT
  Sex: Male

DRUGS (1)
  1. BLINATUMOMAB [Suspect]
     Active Substance: BLINATUMOMAB
     Indication: B PRECURSOR TYPE ACUTE LEUKAEMIA
     Dosage: 15 MUG/M2, QD
     Route: 042

REACTIONS (5)
  - Hypotension [Recovered/Resolved]
  - Muscle contractions involuntary [Recovered/Resolved]
  - Acute lymphocytic leukaemia recurrent [Fatal]
  - Fatigue [Recovered/Resolved]
  - Tremor [Recovered/Resolved]
